FAERS Safety Report 8764068 (Version 1)
Quarter: 2012Q4

REPORT INFORMATION
  Report Type: 
  Country: IT (occurrence: IT)
  Receive Date: 20120831
  Receipt Date: 20120831
  Transmission Date: 20130627
  Serious: Yes (Hospitalization)
  Sender: FDA-Public Use
  Company Number: IT-PFIZER INC-2012212309

PATIENT
  Age: 16 Year
  Sex: Male

DRUGS (1)
  1. CISPLATIN [Suspect]
     Indication: NEURILEMMOMA MALIGNANT
     Dosage: UNK
     Route: 042
     Dates: start: 20120627, end: 20120627

REACTIONS (2)
  - Pancytopenia [Recovering/Resolving]
  - Hepatic lesion [Recovering/Resolving]
